FAERS Safety Report 6975072-0 (Version None)
Quarter: 2010Q3

REPORT INFORMATION
  Report Type: 
  Country: None (occurrence: None)
  Receive Date: 20100910
  Receipt Date: 20090204
  Transmission Date: 20110219
  Serious: No
  Sender: FDA-Public Use
  Company Number: US-WYE-H08094209

PATIENT
  Age: 70 Year
  Sex: Male
  Weight: 74.91 kg

DRUGS (4)
  1. PRISTIQ [Suspect]
     Indication: DEPRESSION
     Route: 048
     Dates: start: 20081029
  2. DIOVAN [Concomitant]
  3. ALLOPURINOL [Concomitant]
  4. LIPITOR [Concomitant]

REACTIONS (5)
  - AMNESIA [None]
  - ANGER [None]
  - ANXIETY [None]
  - HYPERACUSIS [None]
  - MEMORY IMPAIRMENT [None]
